FAERS Safety Report 4634427-X (Version None)
Quarter: 2005Q2

REPORT INFORMATION
  Report Type: 
  Country: None (occurrence: None)
  Receive Date: 20050411
  Receipt Date: 20050330
  Transmission Date: 20051028
  Serious: Yes (Hospitalization, Other)
  Sender: FDA-Public Use
  Company Number: HQWYE651104APR05

PATIENT
  Age: 80 Year
  Sex: Female

DRUGS (6)
  1. EFFEXOR [Suspect]
     Dosage: 75 MG 1X PER 1 DAY
  2. ATORVASTATIN CALCIUM [Suspect]
     Dosage: 20 MG 1X PER 1 DAY
  3. CARBAMAZEPINE [Suspect]
     Dosage: 400 MG 1X PER 1 DAY
  4. METFORMIN HCL [Suspect]
     Dosage: 2 G 1X PER 1 DAY
  5. ACETAMINOPHEN [Suspect]
     Route: 048
  6. ATENOLOL [Concomitant]

REACTIONS (9)
  - ALANINE AMINOTRANSFERASE INCREASED [None]
  - ASPARTATE AMINOTRANSFERASE INCREASED [None]
  - BLOOD ALKALINE PHOSPHATASE INCREASED [None]
  - CONFUSIONAL STATE [None]
  - DRUG INTERACTION [None]
  - GAMMA-GLUTAMYLTRANSFERASE INCREASED [None]
  - HEPATIC FAILURE [None]
  - INTERNATIONAL NORMALISED RATIO INCREASED [None]
  - LETHARGY [None]
